FAERS Safety Report 8264313-8 (Version None)
Quarter: 2012Q2

REPORT INFORMATION
  Report Type: 
  Country: None (occurrence: None)
  Receive Date: 20120406
  Receipt Date: 20120328
  Transmission Date: 20120825
  Serious: Yes (Other)
  Sender: FDA-Public Use
  Company Number: JP-JNJFOC-20120112124

PATIENT
  Sex: Female
  Weight: 43 kg

DRUGS (11)
  1. IMURAN [Concomitant]
     Indication: COLITIS ULCERATIVE
     Route: 048
     Dates: end: 20111115
  2. REMICADE [Suspect]
     Indication: COLITIS ULCERATIVE
     Dosage: 8TH DOSE
     Route: 042
     Dates: start: 20111020
  3. REMICADE [Suspect]
     Route: 042
     Dates: start: 20101116
  4. LEVOTHYROXINE SODIUM [Concomitant]
     Indication: THYROID DISORDER
     Route: 048
  5. RABEPRAZOLE SODIUM [Concomitant]
     Indication: GASTROOESOPHAGEAL REFLUX DISEASE
     Route: 048
  6. DEPAS [Concomitant]
     Indication: PSYCHOSOMATIC DISEASE
     Route: 048
  7. ASACOL [Concomitant]
     Indication: COLITIS ULCERATIVE
     Route: 048
     Dates: end: 20111222
  8. TENORMIN [Concomitant]
     Indication: HYPERTENSION
     Route: 048
  9. MIYA BM [Concomitant]
     Indication: DIARRHOEA
     Route: 048
  10. REMICADE [Suspect]
     Dosage: 8 TH INFUSION
     Route: 042
  11. EXFORGE [Concomitant]
     Indication: HYPERTENSION
     Route: 048

REACTIONS (5)
  - PYREXIA [None]
  - TENOSYNOVITIS [None]
  - HAEMATOCHEZIA [None]
  - PYODERMA GANGRENOSUM [None]
  - CELLULITIS [None]
